FAERS Safety Report 15177889 (Version 1)
Quarter: 2018Q3

REPORT INFORMATION
  Report Type: Spontaneous
  Country: US (occurrence: US)
  Receive Date: 20180720
  Receipt Date: 20180720
  Transmission Date: 20181010
  Serious: No
  Sender: FDA-Public Use
  Company Number: US-ASCENT PHARMACEUTICALS, INC.-2052508

PATIENT
  Age: 33 Year
  Sex: Female
  Weight: 57.73 kg

DRUGS (5)
  1. VYVANSE [Concomitant]
     Active Substance: LISDEXAMFETAMINE DIMESYLATE
  2. DIAZEPAM. [Concomitant]
     Active Substance: DIAZEPAM
  3. FLEXERIL [Concomitant]
     Active Substance: CYCLOBENZAPRINE HYDROCHLORIDE
  4. OXYCODONE AND ACETAMINOPHEN [Suspect]
     Active Substance: ACETAMINOPHEN\OXYCODONE HYDROCHLORIDE
     Indication: PAIN
     Route: 048
     Dates: start: 20180312
  5. CLONIDINE. [Concomitant]
     Active Substance: CLONIDINE

REACTIONS (2)
  - Headache [Recovered/Resolved]
  - Drug ineffective [Recovered/Resolved]

NARRATIVE: CASE EVENT DATE: 20180312
